FAERS Safety Report 12871273 (Version 1)
Quarter: 2016Q4

REPORT INFORMATION
  Report Type: Spontaneous
  Country: TW (occurrence: TW)
  Receive Date: 20161020
  Receipt Date: 20161020
  Transmission Date: 20170207
  Serious: Yes (Death, Hospitalization, Other)
  Sender: FDA-Public Use
  Company Number: PHHY2016TW143882

PATIENT
  Age: 38 Year
  Sex: Female

DRUGS (1)
  1. CARBAMAZEPINE. [Suspect]
     Active Substance: CARBAMAZEPINE
     Indication: COMPLEX PARTIAL SEIZURES
     Dosage: 600 MG, QD
     Route: 065

REACTIONS (16)
  - Chromaturia [Unknown]
  - Delirium [Fatal]
  - Unresponsive to stimuli [Unknown]
  - Metabolic acidosis [Unknown]
  - Hypocalcaemia [Unknown]
  - Disorientation [Fatal]
  - Respiratory failure [Fatal]
  - Oliguria [Fatal]
  - Rhabdomyolysis [Unknown]
  - Ventricular arrhythmia [Unknown]
  - Agitation [Fatal]
  - Intentional overdose [Unknown]
  - Aspartate aminotransferase increased [Unknown]
  - Toxicity to various agents [Fatal]
  - Acute kidney injury [Fatal]
  - Coma [Unknown]
